FAERS Safety Report 9510934 (Version 1)
Quarter: 2013Q3

REPORT INFORMATION
  Report Type: Report from Study
  Country: US (occurrence: US)
  Receive Date: 20130910
  Receipt Date: 20130910
  Transmission Date: 20140515
  Serious: Yes (Other)
  Sender: FDA-Public Use
  Company Number: US-ROCHE-1271754

PATIENT
  Age: 52 Year
  Sex: Female

DRUGS (6)
  1. HERCEPTIN [Suspect]
     Indication: BREAST CANCER METASTATIC
     Dosage: 1L DOSE
     Route: 065
  2. KADCYLA [Suspect]
     Indication: BREAST CANCER METASTATIC
     Route: 065
  3. XELODA [Suspect]
     Indication: BREAST CANCER METASTATIC
     Dosage: 3L DOSE
     Route: 065
  4. TAXOTERE [Concomitant]
     Dosage: 1L
     Route: 065
  5. NAVELBINE [Concomitant]
     Dosage: 2L
     Route: 065
  6. TYKERB [Concomitant]
     Dosage: 3L
     Route: 065

REACTIONS (2)
  - Febrile neutropenia [Unknown]
  - Disease progression [Unknown]
